FAERS Safety Report 20805141 (Version 2)
Quarter: 2022Q2

REPORT INFORMATION
  Report Type: Spontaneous
  Country: US (occurrence: US)
  Receive Date: 20220509
  Receipt Date: 20220616
  Transmission Date: 20220720
  Serious: Yes (Other)
  Sender: FDA-Public Use
  Company Number: US-MALLINCKRODT-T202201356

PATIENT
  Age: 68 Year
  Sex: Female

DRUGS (5)
  1. H.P. ACTHAR [Suspect]
     Active Substance: CORTICOTROPIN
     Indication: Punctate keratitis
     Dosage: 1 MILLILITER (80 UNITS), TWICE A WEEK
     Route: 058
     Dates: start: 202111, end: 202111
  2. H.P. ACTHAR [Suspect]
     Active Substance: CORTICOTROPIN
     Dosage: 40 UNITS, TWICE A WEEK
     Route: 058
     Dates: start: 20211130
  3. CEQUA [Concomitant]
     Active Substance: CYCLOSPORINE
     Indication: Eye disorder
     Dosage: UNK
     Route: 065
  4. XIIDRA [Concomitant]
     Active Substance: LIFITEGRAST
     Indication: Eye disorder
     Dosage: UNK
     Route: 065
  5. REFRESH TEARS [Concomitant]
     Active Substance: CARBOXYMETHYLCELLULOSE SODIUM
     Indication: Eye disorder
     Dosage: UNK
     Route: 065

REACTIONS (10)
  - Neuropathy peripheral [Unknown]
  - Fibromyalgia [Unknown]
  - Appetite disorder [Unknown]
  - Foreign body sensation in eyes [Not Recovered/Not Resolved]
  - Weight increased [Unknown]
  - Osteoporosis [Unknown]
  - Diarrhoea [Unknown]
  - Fluid retention [Not Recovered/Not Resolved]
  - Expired product administered [Unknown]
  - Product dose omission issue [Unknown]

NARRATIVE: CASE EVENT DATE: 20220331
